FAERS Safety Report 6094793-8 (Version None)
Quarter: 2009Q1

REPORT INFORMATION
  Report Type: 
  Country: None (occurrence: None)
  Receive Date: 20090225
  Receipt Date: 20090211
  Transmission Date: 20090719
  Serious: Yes (Hospitalization)
  Sender: FDA-Public Use
  Company Number: 230445M08USA

PATIENT
  Age: 59 Year
  Sex: Female
  Weight: 64 kg

DRUGS (5)
  1. REBIF [Suspect]
     Indication: MULTIPLE SCLEROSIS
     Dosage: 44 MCG, 3 IN 1 WEEKS, SUBCUTANEOUS
     Route: 058
     Dates: start: 20070824
  2. METOPROLOL [Concomitant]
  3. NORVASC [Concomitant]
  4. BENICAR [Concomitant]
  5. INDAPAMIDE [Concomitant]

REACTIONS (5)
  - ANKLE FRACTURE [None]
  - BACTERIA SPUTUM IDENTIFIED [None]
  - BLOOD PRESSURE FLUCTUATION [None]
  - FALL [None]
  - STAPHYLOCOCCAL INFECTION [None]
